FAERS Safety Report 21087330 (Version 1)
Quarter: 2022Q3

REPORT INFORMATION
  Report Type: Spontaneous
  Country: GB (occurrence: GB)
  Receive Date: 20220715
  Receipt Date: 20220715
  Transmission Date: 20221027
  Serious: Yes (Other)
  Sender: FDA-Public Use
  Company Number: None

PATIENT
  Age: 51 Year
  Sex: Female
  Weight: 83 kg

DRUGS (6)
  1. LOSARTAN [Suspect]
     Active Substance: LOSARTAN
     Indication: Ill-defined disorder
     Route: 048
     Dates: start: 20220704
  2. LOSARTAN [Suspect]
     Active Substance: LOSARTAN
     Dates: start: 20220704
  3. AMLODIPINE [Concomitant]
     Active Substance: AMLODIPINE BESYLATE
     Indication: Ill-defined disorder
     Dosage: TAKE ONE DAILY FOR BLOOD PRESSURE CONTROL
     Dates: start: 20220704
  4. ESTRADIOL [Concomitant]
     Active Substance: ESTRADIOL
     Indication: Ill-defined disorder
     Dosage: APPLY 2 PUMPS ONCE A DAY AS PER INSTRUCTIONS (CAN INCREASE TO 3 PUMPS IF NEEDED)
     Dates: start: 20220619
  5. UTROGESTAN [Concomitant]
     Active Substance: PROGESTERONE
     Indication: Ill-defined disorder
     Dosage: TAKE TWO DAILY FOR THE LAST 2 WEEKS OF A 12 WEE...
     Dates: start: 20220425
  6. LOSARTAN. [Concomitant]
     Indication: Ill-defined disorder
     Dosage: TAKE ONE DAILY FOR BLOOD PRESSURE CONTROL
     Dates: start: 20220407

REACTIONS (1)
  - Alopecia [Recovered/Resolved]

NARRATIVE: CASE EVENT DATE: 20220704
